FAERS Safety Report 13640394 (Version 1)
Quarter: 2017Q2

REPORT INFORMATION
  Report Type: Spontaneous
  Country: US (occurrence: US)
  Receive Date: 20170610
  Receipt Date: 20170610
  Transmission Date: 20170830
  Serious: No
  Sender: FDA-Public Use
  Company Number: US-009507513-1706USA004324

PATIENT
  Sex: Female

DRUGS (2)
  1. SINGULAIR [Concomitant]
     Active Substance: MONTELUKAST SODIUM
     Dosage: UNK
     Route: 048
  2. ASMANEX [Suspect]
     Active Substance: MOMETASONE FUROATE
     Indication: PNEUMONITIS
     Dosage: UNK
     Route: 055
     Dates: start: 2017, end: 201705

REACTIONS (3)
  - Product quality issue [Unknown]
  - Drug ineffective [Recovering/Resolving]
  - Circumstance or information capable of leading to medication error [Unknown]

NARRATIVE: CASE EVENT DATE: 2017
